FAERS Safety Report 5341813-1 (Version None)
Quarter: 2007Q2

REPORT INFORMATION
  Report Type: 
  Country: None (occurrence: None)
  Receive Date: 20070529
  Receipt Date: 20070529
  Transmission Date: 20071010
  Serious: Yes (Other)
  Sender: FDA-Public Use
  Company Number: None

PATIENT
  Age: 31 Month
  Sex: Male
  Weight: 18 kg

DRUGS (1)
  1. PROTOPIC [Suspect]
     Dosage: DURING FIRST YEAR OF LIFE

REACTIONS (1)
  - ACUTE LYMPHOCYTIC LEUKAEMIA [None]
